FAERS Safety Report 4603242-5 (Version None)
Quarter: 2005Q1

REPORT INFORMATION
  Report Type: 
  Country: None (occurrence: None)
  Receive Date: 20050308
  Receipt Date: 20050301
  Transmission Date: 20050727
  Serious: Yes (Life-Threatening)
  Sender: FDA-Public Use
  Company Number: 2005GB00419

PATIENT
  Age: 48 Year
  Sex: Female
  Weight: 80 kg

DRUGS (4)
  1. LISINOPRIL [Suspect]
     Indication: HYPERTENSION
     Dosage: 5 MG  PO
     Route: 048
     Dates: start: 20040901
  2. BRICANYL [Concomitant]
  3. UNIPHYLLIN    NAPP [Concomitant]
  4. BENDROFLUAZIDE [Concomitant]

REACTIONS (2)
  - ANGIONEUROTIC OEDEMA [None]
  - OBSTRUCTIVE AIRWAYS DISORDER [None]
